FAERS Safety Report 10954488 (Version 4)
Quarter: 2015Q2

REPORT INFORMATION
  Report Type: Spontaneous
  Country: US (occurrence: US)
  Receive Date: 20150325
  Receipt Date: 20150522
  Transmission Date: 20150821
  Serious: Yes (Hospitalization, Disabling, Other)
  Sender: FDA-Public Use
  Company Number: US-009507513-1111USA03763

PATIENT
  Sex: Female
  Weight: 79.37 kg

DRUGS (13)
  1. FOSAMAX [Suspect]
     Active Substance: ALENDRONATE SODIUM
     Indication: OSTEOPOROSIS
     Dosage: 10 MG, QD
     Route: 048
     Dates: start: 200010, end: 20030103
  2. FOSAMAX [Suspect]
     Active Substance: ALENDRONATE SODIUM
     Dosage: UNK
     Route: 048
     Dates: start: 1995
  3. ALENDRONATE SODIUM. [Suspect]
     Active Substance: ALENDRONATE SODIUM
     Indication: OSTEOPOROSIS
     Dosage: 70 MG, QW
     Route: 048
     Dates: start: 20081216, end: 20100611
  4. ACTONEL [Suspect]
     Active Substance: RISEDRONATE SODIUM
     Indication: OSTEOPOROSIS
     Dosage: 35 MG, QW
     Route: 048
     Dates: start: 20021030
  5. FLUDROCORTISONE [Concomitant]
     Active Substance: FLUDROCORTISONE
     Indication: ADDISON^S DISEASE
     Dosage: 0.05MG X 2D, THEN 0.1MG X 1D
     Dates: start: 1990
  6. PREDNISONE. [Concomitant]
     Active Substance: PREDNISONE
     Indication: ADDISON^S DISEASE
     Dosage: 7.5 MG, QD
     Dates: start: 1997
  7. ALENDRONATE SODIUM. [Suspect]
     Active Substance: ALENDRONATE SODIUM
     Indication: OSTEOPENIA
  8. FLORINEF ACETATE [Concomitant]
     Active Substance: FLUDROCORTISONE ACETATE
     Indication: ADDISON^S DISEASE
     Dosage: 0.05MG QD-0.1MG BID
     Dates: start: 1990
  9. VITAMINS (UNSPECIFIED) [Concomitant]
     Active Substance: VITAMINS
     Dosage: UNK
     Dates: start: 1962
  10. FOSAMAX [Suspect]
     Active Substance: ALENDRONATE SODIUM
     Indication: OSTEOPENIA
     Dosage: UNK MG, QW
     Route: 048
     Dates: end: 20021030
  11. LEVOXYL [Concomitant]
     Active Substance: LEVOTHYROXINE SODIUM
     Indication: HYPOTHYROIDISM
     Dosage: 100 MICROGRAM, QD
     Dates: start: 1990
  12. ACTONEL [Suspect]
     Active Substance: RISEDRONATE SODIUM
     Indication: OSTEOPENIA
  13. CALCIUM (UNSPECIFIED) [Concomitant]
     Active Substance: CALCIUM
     Dosage: UNK
     Dates: start: 1989

REACTIONS (20)
  - Foot fracture [Unknown]
  - Osteoporosis [Not Recovered/Not Resolved]
  - Low turnover osteopathy [Not Recovered/Not Resolved]
  - Femur fracture [Recovered/Resolved]
  - Drug intolerance [Unknown]
  - Appendicectomy [Unknown]
  - Spinal fracture [Unknown]
  - Dyspepsia [Recovering/Resolving]
  - Nausea [Unknown]
  - Back pain [Not Recovered/Not Resolved]
  - Foot fracture [Unknown]
  - Intramedullary rod insertion [Unknown]
  - Neoplasm skin [Unknown]
  - Liver function test abnormal [Unknown]
  - Lower limb fracture [Unknown]
  - Stress fracture [Not Recovered/Not Resolved]
  - Sinus bradycardia [Unknown]
  - Chronic sinusitis [Not Recovered/Not Resolved]
  - Muscle spasms [Unknown]
  - Arthralgia [Not Recovered/Not Resolved]

NARRATIVE: CASE EVENT DATE: 1997
